FAERS Safety Report 5765722-9 (Version None)
Quarter: 2008Q2

REPORT INFORMATION
  Report Type: 
  Country: None (occurrence: None)
  Receive Date: 20080611
  Receipt Date: 20080602
  Transmission Date: 20081010
  Serious: Yes (Other)
  Sender: FDA-Public Use
  Company Number: PHHY2008ES09571

PATIENT
  Age: 50 Year
  Sex: Female

DRUGS (2)
  1. METHERGINE [Suspect]
     Indication: METRORRHAGIA
     Dosage: 10ML
     Route: 048
     Dates: start: 20070418, end: 20070418
  2. NAPROXEN ^RATIOPHARM^ [Suspect]
     Dosage: 500MG DAILY
     Route: 048
     Dates: start: 20070101

REACTIONS (2)
  - HYPERTENSIVE CRISIS [None]
  - PARAESTHESIA ORAL [None]
